FAERS Safety Report 12242746 (Version 1)
Quarter: 2016Q2

REPORT INFORMATION
  Report Type: Spontaneous
  Country: US (occurrence: US)
  Receive Date: 20160406
  Receipt Date: 20160406
  Transmission Date: 20160815
  Serious: No
  Sender: FDA-Public Use
  Company Number: US-BAYER-2016-064152

PATIENT
  Age: 53 Year
  Sex: Male

DRUGS (5)
  1. CLARITIN-D 12 HOUR [Suspect]
     Active Substance: LORATADINE\PSEUDOEPHEDRINE SULFATE
     Indication: NASOPHARYNGITIS
     Dosage: 1 DF, BID
     Route: 048
     Dates: start: 20160331, end: 20160331
  2. CARAFATE [Concomitant]
     Active Substance: SUCRALFATE
     Dosage: UNK
  3. BAYER GENUINE ASPIRIN [Suspect]
     Active Substance: ASPIRIN
     Dosage: UNK
  4. OMEPRAZOLE. [Concomitant]
     Active Substance: OMEPRAZOLE
     Dosage: UNK
  5. LEVETIRACETAM. [Concomitant]
     Active Substance: LEVETIRACETAM
     Dosage: UNK

REACTIONS (4)
  - Headache [Recovered/Resolved]
  - Abdominal pain upper [Recovered/Resolved]
  - Drug hypersensitivity [None]
  - Back pain [Recovered/Resolved]

NARRATIVE: CASE EVENT DATE: 20160331
